FAERS Safety Report 7431223-5 (Version None)
Quarter: 2011Q2

REPORT INFORMATION
  Report Type: 
  Country: None (occurrence: None)
  Receive Date: 20110421
  Receipt Date: 20110421
  Transmission Date: 20111010
  Serious: Yes (Other)
  Sender: FDA-Public Use
  Company Number: GB-ABBOTT-11P-167-0720694-00

PATIENT
  Age: 59 Year
  Sex: Female

DRUGS (4)
  1. LEFLUNOMIDE [Concomitant]
     Indication: PSORIATIC ARTHROPATHY
     Dates: start: 20100701
  2. SULPHASALAZINE [Concomitant]
     Indication: PSORIATIC ARTHROPATHY
     Dates: start: 20100201
  3. METHOTREXATE [Concomitant]
     Indication: PSORIATIC ARTHROPATHY
     Route: 058
     Dates: start: 20091201
  4. HUMIRA [Suspect]
     Indication: PSORIATIC ARTHROPATHY
     Dates: start: 20110218, end: 20110305

REACTIONS (4)
  - EYE SWELLING [None]
  - PURPURA [None]
  - LIVER FUNCTION TEST ABNORMAL [None]
  - RASH [None]
